FAERS Safety Report 25676339 (Version 1)
Quarter: 2025Q3

REPORT INFORMATION
  Report Type: Spontaneous
  Country: CA (occurrence: None)
  Receive Date: 20250813
  Receipt Date: 20250813
  Transmission Date: 20251020
  Serious: No
  Sender: FDA-CTU
  Company Number: None

PATIENT
  Age: 28 Year
  Sex: Female
  Weight: 74.25 kg

DRUGS (11)
  1. XOLAIR [Suspect]
     Active Substance: OMALIZUMAB
     Indication: Chronic spontaneous urticaria
     Dosage: OTHER QUANTITY : 2 INJECTION(S);?OTHER FREQUENCY : MONTHLY;?
     Route: 058
     Dates: start: 20250812
  2. SPIRONOLACTONE [Concomitant]
     Active Substance: SPIRONOLACTONE
  3. ketamine nasal spray [Concomitant]
  4. DEXEDRINE [Concomitant]
     Active Substance: DEXTROAMPHETAMINE SULFATE
  5. OMEPRAZOLE [Concomitant]
     Active Substance: OMEPRAZOLE
  6. XOLAIR [Concomitant]
     Active Substance: OMALIZUMAB
  7. CLONAZEPAM [Concomitant]
     Active Substance: CLONAZEPAM
  8. TRAZODONE [Concomitant]
     Active Substance: TRAZODONE HYDROCHLORIDE
  9. CETIRIZINE [Concomitant]
     Active Substance: CETIRIZINE HYDROCHLORIDE
  10. KETOTIFEN [Concomitant]
     Active Substance: KETOTIFEN
  11. PREDNISONE [Suspect]
     Active Substance: PREDNISONE

REACTIONS (3)
  - Nausea [None]
  - Vomiting [None]
  - Pharyngeal swelling [None]

NARRATIVE: CASE EVENT DATE: 20250812
